FAERS Safety Report 18591256 (Version 1)
Quarter: 2020Q4

REPORT INFORMATION
  Report Type: Spontaneous
  Country: CN (occurrence: CN)
  Receive Date: 20201208
  Receipt Date: 20201208
  Transmission Date: 20210114
  Serious: Yes (Hospitalization, Other)
  Sender: FDA-Public Use
  Company Number: CN-PFIZER INC-2020479799

PATIENT
  Age: 3 Year
  Sex: Female
  Weight: 14 kg

DRUGS (3)
  1. METHOTREXATE. [Suspect]
     Active Substance: METHOTREXATE
     Dosage: 12.5 MG, 1X/DAY
     Route: 037
     Dates: start: 20201108
  2. METHOTREXATE. [Suspect]
     Active Substance: METHOTREXATE
     Indication: CHEMOTHERAPY
     Dosage: 2160 MG, 1X/DAY
     Route: 042
     Dates: start: 20201108
  3. CYTARABINE. [Suspect]
     Active Substance: CYTARABINE
     Indication: CHEMOTHERAPY
     Dosage: 0.035 G, 1X/DAY
     Route: 037
     Dates: start: 20201108

REACTIONS (8)
  - Agranulocytosis [Recovering/Resolving]
  - Neutrophil percentage decreased [Recovering/Resolving]
  - Neutrophil count decreased [Recovering/Resolving]
  - White blood cell count decreased [Recovering/Resolving]
  - Myelosuppression [Recovering/Resolving]
  - Haemoglobin decreased [Recovering/Resolving]
  - Lymphocyte percentage increased [Recovering/Resolving]
  - Platelet count decreased [Recovering/Resolving]

NARRATIVE: CASE EVENT DATE: 20201116
